FAERS Safety Report 20664631 (Version 1)
Quarter: 2022Q2

REPORT INFORMATION
  Report Type: Spontaneous
  Country: CN (occurrence: CN)
  Receive Date: 20220401
  Receipt Date: 20220401
  Transmission Date: 20220721
  Serious: Yes (Other)
  Sender: FDA-Public Use
  Company Number: CN-PFIZER INC-202200468946

PATIENT
  Sex: Male

DRUGS (1)
  1. CYTARABINE [Suspect]
     Active Substance: CYTARABINE
     Indication: Acute myeloid leukaemia
     Dosage: 4400 MG, 2X/DAY
     Route: 041
     Dates: start: 20220309, end: 20220309

REACTIONS (6)
  - Stomatitis [Recovered/Resolved]
  - Cheilitis [Recovered/Resolved]
  - Pharyngeal erythema [Recovered/Resolved]
  - Rash papular [Recovered/Resolved]
  - Hypoaesthesia oral [Recovered/Resolved]
  - Laryngeal pain [Recovered/Resolved]

NARRATIVE: CASE EVENT DATE: 20220309
